FAERS Safety Report 4315127-2 (Version None)
Quarter: 2004Q1

REPORT INFORMATION
  Report Type: 
  Country: None (occurrence: None)
  Receive Date: 20040310
  Receipt Date: 20040120
  Transmission Date: 20041129
  Serious: Yes (Other)
  Sender: FDA-Public Use
  Company Number: US-GLAXOSMITHKLINE-A0494042A

PATIENT
  Age: 21 Year
  Sex: Female
  Weight: 77.2 kg

DRUGS (2)
  1. ALOSETRON HYDROCHLORIDE [Suspect]
     Indication: IRRITABLE BOWEL SYNDROME
     Route: 048
     Dates: start: 20031104, end: 20040106
  2. CONTRACEPTION [Concomitant]
     Indication: CONTRACEPTION
     Route: 067
     Dates: start: 20030701, end: 20040106

REACTIONS (3)
  - ABORTION SPONTANEOUS [None]
  - COMPLICATIONS OF MATERNAL EXPOSURE TO THERAPEUTIC DRUGS [None]
  - MATERNAL DRUGS AFFECTING FOETUS [None]
